FAERS Safety Report 9068307 (Version 1)
Quarter: 2013Q1

REPORT INFORMATION
  Report Type: Spontaneous
  Country: US (occurrence: US)
  Receive Date: 20130128
  Receipt Date: 20130128
  Transmission Date: 20140127
  Serious: Yes (Other)
  Sender: FDA-Public Use
  Company Number: US-PFIZER INC-2013032681

PATIENT
  Age: 75 Year
  Sex: Female
  Weight: 50.79 kg

DRUGS (1)
  1. LIPITOR [Suspect]
     Indication: BLOOD CHOLESTEROL INCREASED
     Dosage: 10 MG, 1X/DAY
     Route: 048
     Dates: start: 1992

REACTIONS (2)
  - Eye haemorrhage [Recovered/Resolved]
  - Blindness unilateral [Recovered/Resolved]
